FAERS Safety Report 8543206-2 (Version None)
Quarter: 2012Q3

REPORT INFORMATION
  Report Type: 
  Country: None (occurrence: None)
  Receive Date: 20120727
  Receipt Date: 20120718
  Transmission Date: 20120928
  Serious: Yes (Hospitalization)
  Sender: FDA-Public Use
  Company Number: RU-JNJFOC-20110404345

PATIENT
  Sex: Female
  Weight: 45 kg

DRUGS (18)
  1. GALANTAMINE HYDROBROMIDE [Suspect]
     Indication: DEMENTIA ALZHEIMER'S TYPE
     Route: 048
     Dates: start: 20090710
  2. POTASSIUM CHLORIDE [Concomitant]
     Indication: ARTERIOSCLEROSIS CORONARY ARTERY
     Route: 042
     Dates: start: 20110413, end: 20110416
  3. POTASSIUM CHLORIDE [Concomitant]
     Indication: MYOCARDIAL ISCHAEMIA
     Route: 042
     Dates: start: 20110413, end: 20110416
  4. AMBAZONE [Concomitant]
     Indication: VIRAL INFECTION
     Route: 048
     Dates: start: 20100119, end: 20100125
  5. ASCORBIC ACID [Concomitant]
     Indication: IRON DEFICIENCY ANAEMIA
     Route: 048
     Dates: start: 20110413
  6. FERROUS SULFATE TAB [Concomitant]
     Indication: IRON DEFICIENCY ANAEMIA
     Route: 048
     Dates: start: 20110413
  7. ENALAPRIL MALEATE [Concomitant]
     Indication: HYPERTENSION
     Route: 048
     Dates: start: 20100119, end: 20100125
  8. SILIBININ [Concomitant]
     Indication: BLOOD BILIRUBIN INCREASED
     Route: 048
     Dates: start: 20110413
  9. DEXTROSE [Concomitant]
     Indication: ARTERIOSCLEROSIS CORONARY ARTERY
     Route: 042
     Dates: start: 20110413, end: 20110416
  10. INSULIN [Concomitant]
     Route: 042
     Dates: start: 20110413, end: 20110416
  11. DIAZEPAM [Concomitant]
     Indication: DEMENTIA ALZHEIMER'S TYPE
     Route: 042
     Dates: start: 20110407, end: 20110408
  12. INOSINE [Concomitant]
     Indication: MYOCARDIAL ISCHAEMIA
     Route: 042
     Dates: start: 20110413, end: 20110416
  13. INDAPAMID [Concomitant]
     Indication: HYPERTENSION
     Route: 048
     Dates: start: 20100119, end: 20100125
  14. MAGNESIUM SULFATE [Concomitant]
     Indication: MYOCARDIAL ISCHAEMIA
     Route: 042
     Dates: start: 20110413, end: 20110416
  15. DEXTROSE [Concomitant]
     Indication: MYOCARDIAL ISCHAEMIA
     Route: 042
     Dates: start: 20110413, end: 20110416
  16. PENTOXIFYLLINE [Concomitant]
     Indication: DEMENTIA ALZHEIMER'S TYPE
     Route: 042
     Dates: start: 20110407
  17. INOSINE [Concomitant]
     Indication: ARTERIOSCLEROSIS CORONARY ARTERY
     Route: 042
     Dates: start: 20110413, end: 20110416
  18. MAGNESIUM SULFATE [Concomitant]
     Indication: ARTERIOSCLEROSIS CORONARY ARTERY
     Route: 042
     Dates: start: 20110413, end: 20110416

REACTIONS (1)
  - DEMENTIA ALZHEIMER'S TYPE [None]
